FAERS Safety Report 9767799 (Version 3)
Quarter: 2013Q4

REPORT INFORMATION
  Report Type: Spontaneous
  Country: CA (occurrence: None)
  Receive Date: 20130906
  Receipt Date: 20131118
  Transmission Date: 20140711
  Serious: Yes (Life-Threatening, Other)
  Sender: FDA-Public Use
  Company Number: 20130471

PATIENT
  Sex: Female

DRUGS (2)
  1. VENOFER [Suspect]
     Indication: PRODUCT USED FOR UNKNOWN INDICATION
     Dosage: 300MG IN 500 CC?
     Dates: start: 20130304, end: 20130304
  2. REMICADE [Concomitant]

REACTIONS (6)
  - Wrong technique in drug usage process [None]
  - Generalised oedema [None]
  - Rash generalised [None]
  - Respiratory arrest [None]
  - Infusion related reaction [None]
  - Wrong technique in drug usage process [None]
